FAERS Safety Report 7909647-9 (Version None)
Quarter: 2011Q4

REPORT INFORMATION
  Report Type: 
  Country: None (occurrence: None)
  Receive Date: 20111111
  Receipt Date: 20111104
  Transmission Date: 20120403
  Serious: Yes (Other)
  Sender: FDA-Public Use
  Company Number: US-GLAXOSMITHKLINE-A0952025A

PATIENT
  Age: 20 Year
  Sex: Female

DRUGS (1)
  1. IMITREX [Suspect]
     Indication: MIGRAINE
     Dosage: 5ML SINGLE DOSE
     Route: 042
     Dates: start: 20111104

REACTIONS (2)
  - HEADACHE [None]
  - INCORRECT ROUTE OF DRUG ADMINISTRATION [None]
